FAERS Safety Report 5680755-9 (Version None)
Quarter: 2008Q1

REPORT INFORMATION
  Report Type: 
  Country: None (occurrence: None)
  Receive Date: 20080325
  Receipt Date: 20080314
  Transmission Date: 20080703
  Serious: Yes (Other)
  Sender: FDA-Public Use
  Company Number: 14109136

PATIENT
  Sex: Female

DRUGS (1)
  1. EMSAM [Suspect]
     Indication: DEPRESSION
     Dosage: TD
     Dates: end: 20080304

REACTIONS (5)
  - CONVULSION [None]
  - FEELING ABNORMAL [None]
  - HEADACHE [None]
  - INSOMNIA [None]
  - SENSORY DISTURBANCE [None]
